FAERS Safety Report 4911619-3 (Version None)
Quarter: 2006Q1

REPORT INFORMATION
  Report Type: 
  Country: None (occurrence: None)
  Receive Date: 20060213
  Receipt Date: 20060206
  Transmission Date: 20060701
  Serious: Yes (Death)
  Sender: FDA-Public Use
  Company Number: HQWYE696907FEB06

PATIENT
  Age: 29 Year
  Sex: Female
  Weight: 70 kg

DRUGS (3)
  1. TYGACIL [Suspect]
     Indication: ABDOMINAL INFECTION
     Dosage: 100 MG LOAD THEN 50 MG EVERY 12 HRS, INTRAVENOUS
     Route: 042
     Dates: start: 20060127, end: 20060202
  2. NORMAL HUMAN IMMUNOGLOBULIN (NORMAL HUMAN IMMUNOGLOBULIN) [Concomitant]
  3. COUMADIN [Concomitant]

REACTIONS (5)
  - CARDIAC ARREST [None]
  - DIARRHOEA [None]
  - HAEMORRHAGE [None]
  - HYPOTENSION [None]
  - WHITE BLOOD CELL COUNT INCREASED [None]
